FAERS Safety Report 15990913 (Version 2)
Quarter: 2019Q1

REPORT INFORMATION
  Report Type: Spontaneous
  Country: JP (occurrence: JP)
  Receive Date: 20190221
  Receipt Date: 20190311
  Transmission Date: 20190418
  Serious: Yes (Other)
  Sender: FDA-Public Use
  Company Number: JP-TEVA-2019-JP-1013950

PATIENT
  Age: 65 Year
  Sex: Male

DRUGS (11)
  1. AFLIBERCEPT [Suspect]
     Active Substance: AFLIBERCEPT
     Indication: COLON CANCER METASTATIC
     Dosage: 4 MG/KG
     Route: 065
  2. L-LV [Suspect]
     Active Substance: LEUCOVORIN
     Dosage: 200 MG/M2, IN FRAME OF FOLFIRI REGIMEN
     Route: 065
  3. 5-FLUOROURACIL [Suspect]
     Active Substance: FLUOROURACIL
     Indication: COLON CANCER METASTATIC
     Dosage: 400 MG/M2, IN FRAME OF FOLFOX REGIMEN
     Route: 050
  4. 5-FLUOROURACIL [Suspect]
     Active Substance: FLUOROURACIL
     Dosage: 2500 MG/M2, 46H, IN FRAME OF FOLFIRI REGIMEN
     Route: 065
  5. BEVACIZUMAB. [Suspect]
     Active Substance: BEVACIZUMAB
     Indication: COLON CANCER METASTATIC
     Dosage: 5 MG/KG
     Route: 065
  6. L-LV [Suspect]
     Active Substance: LEUCOVORIN
     Indication: COLON CANCER METASTATIC
     Dosage: 200 MG/M2, IN FRAME OF FOLFOX REGIMEN
     Route: 065
  7. 5-FLUOROURACIL [Suspect]
     Active Substance: FLUOROURACIL
     Dosage: 400 MG/M2, IN FRAME OF FOLFIRI REGIMEN
     Route: 065
  8. L-OHP [Suspect]
     Active Substance: OXALIPLATIN
     Indication: COLON CANCER METASTATIC
     Dosage: 85 MG/M2, IN FRAME OF FOLFOX REGIMEN
     Route: 065
  9. IRINOTECAN [Suspect]
     Active Substance: IRINOTECAN
     Indication: COLON CANCER METASTATIC
     Dosage: 150 MG/M2, IN FRAME OF FOLFIRI REGIMEN
     Route: 065
  10. 5-FLUOROURACIL [Suspect]
     Active Substance: FLUOROURACIL
     Dosage: 2400 MG/M2, 46H, IN FRAME OF FOLFOX REGIMEN
     Route: 065
  11. UFT/LEUCOVORIN [Concomitant]

REACTIONS (6)
  - Gingival bleeding [Unknown]
  - Neutropenia [Unknown]
  - Amylase increased [Unknown]
  - Blood fibrinogen increased [Unknown]
  - Hypertension [Unknown]
  - Hyperhidrosis [Unknown]
